FAERS Safety Report 10550716 (Version 1)
Quarter: 2014Q4

REPORT INFORMATION
  Report Type: Spontaneous
  Country: US (occurrence: None)
  Receive Date: 20141028
  Receipt Date: 20141028
  Transmission Date: 20150529
  Serious: Yes (Death, Hospitalization, Disabling)
  Sender: FDA-Public Use
  Company Number: None

PATIENT
  Age: 54 Year
  Sex: Male
  Weight: 113.4 kg

DRUGS (8)
  1. DIOVAN [Concomitant]
     Active Substance: VALSARTAN
  2. UENS VITAMINS [Concomitant]
  3. IMURAN [Suspect]
     Active Substance: AZATHIOPRINE
     Indication: CROHN^S DISEASE
     Dosage: 1 1/2 TABLETS EVERY DAY ONCE DAILY BY MOUTH
     Route: 048
     Dates: start: 20040223, end: 20131205
  4. ASACOL [Concomitant]
     Active Substance: MESALAMINE
  5. OMEPRAZOLE. [Concomitant]
     Active Substance: OMEPRAZOLE
  6. METOPROLOL [Concomitant]
     Active Substance: METOPROLOL
  7. ALLOPURINOL. [Concomitant]
     Active Substance: ALLOPURINOL
  8. AZATHIOPRINE. [Concomitant]
     Active Substance: AZATHIOPRINE

REACTIONS (1)
  - Myelodysplastic syndrome [None]

NARRATIVE: CASE EVENT DATE: 20131227
